FAERS Safety Report 17794254 (Version 1)
Quarter: 2020Q2

REPORT INFORMATION
  Report Type: Report from Study
  Country: ES (occurrence: ES)
  Receive Date: 20200515
  Receipt Date: 20200515
  Transmission Date: 20200714
  Serious: Yes (Life-Threatening, Hospitalization)
  Sender: FDA-Public Use
  Company Number: ES-MYLANLABS-2020M1047903

PATIENT
  Age: 73 Year
  Sex: Male

DRUGS (6)
  1. SERTRALINE [Suspect]
     Active Substance: SERTRALINE HYDROCHLORIDE
     Indication: PRODUCT USED FOR UNKNOWN INDICATION
     Dosage: 50 MILLIGRAM, QD
     Route: 048
     Dates: start: 201407, end: 20170819
  2. ADIRO [Interacting]
     Active Substance: ASPIRIN
     Indication: PRODUCT USED FOR UNKNOWN INDICATION
     Dosage: 100 MILLIGRAM, QD
     Route: 048
     Dates: start: 201406, end: 20170819
  3. SINTROM [Interacting]
     Active Substance: ACENOCOUMAROL
     Indication: CARDIAC FLUTTER
     Dosage: UNK
     Route: 048
     Dates: start: 201406, end: 20170817
  4. BISOPROLOL [Concomitant]
     Active Substance: BISOPROLOL
     Indication: CARDIAC FLUTTER
     Dosage: 10 MILLIGRAM, QD
     Route: 048
     Dates: start: 201406, end: 20170819
  5. PREDNISONE. [Interacting]
     Active Substance: PREDNISONE
     Indication: PRODUCT USED FOR UNKNOWN INDICATION
     Dosage: 2.5 MILLIGRAM, QD
     Route: 048
  6. RIFAXIMINA [Concomitant]
     Active Substance: RIFAXIMIN
     Dosage: 200 MILLIGRAM, QD
     Route: 048
     Dates: start: 201502, end: 20170817

REACTIONS (2)
  - Lower gastrointestinal haemorrhage [Recovered/Resolved]
  - Drug interaction [Unknown]

NARRATIVE: CASE EVENT DATE: 20170816
